FAERS Safety Report 7442818-7 (Version None)
Quarter: 2011Q2

REPORT INFORMATION
  Report Type: 
  Country: None (occurrence: None)
  Receive Date: 20110428
  Receipt Date: 20110415
  Transmission Date: 20111010
  Serious: Yes (Hospitalization)
  Sender: FDA-Public Use
  Company Number: US-JNJFOC-20091203752

PATIENT
  Sex: Female
  Weight: 38.2 kg

DRUGS (7)
  1. INFLIXIMAB [Suspect]
     Route: 042
  2. INFLIXIMAB [Suspect]
     Route: 042
  3. INFLIXIMAB [Suspect]
     Route: 042
  4. INFLIXIMAB [Suspect]
     Indication: INFLAMMATORY BOWEL DISEASE
     Route: 042
  5. STEROIDS NOS [Concomitant]
     Route: 042
  6. AZATHIOPRINE [Suspect]
     Indication: ILL-DEFINED DISORDER
  7. LEVOTHYROXINE SODIUM [Concomitant]

REACTIONS (2)
  - BACTERIAL INFECTION [None]
  - ANORECTAL CELLULITIS [None]
